FAERS Safety Report 5705578-3 (Version None)
Quarter: 2008Q2

REPORT INFORMATION
  Report Type: 
  Country: None (occurrence: None)
  Receive Date: 20080415
  Receipt Date: 20080401
  Transmission Date: 20081010
  Serious: Yes (Life-Threatening, Hospitalization)
  Sender: FDA-Public Use
  Company Number: CH-AMGEN-UK272142

PATIENT
  Sex: Male

DRUGS (7)
  1. NEULASTA [Suspect]
     Indication: CHEMOTHERAPY
     Route: 058
     Dates: start: 20080201, end: 20080201
  2. FILGRASTIM [Suspect]
  3. RITUXIMAB [Concomitant]
     Dates: start: 20080131
  4. CYCLOPHOSPHAMIDE [Concomitant]
     Dates: start: 20080131
  5. DOXORUBICIN HYDROCHLORIDE [Concomitant]
     Dates: start: 20080131
  6. VINCRISTINE [Concomitant]
     Dates: start: 20080131
  7. PREDNISOLONE [Concomitant]
     Dates: start: 20080131

REACTIONS (5)
  - DRUG INEFFECTIVE [None]
  - FEBRILE NEUTROPENIA [None]
  - LEUKOPENIA [None]
  - NEUTROPENIA [None]
  - PYREXIA [None]
